FAERS Safety Report 5413875-4 (Version None)
Quarter: 2007Q3

REPORT INFORMATION
  Report Type: 
  Country: None (occurrence: None)
  Receive Date: 20070814
  Receipt Date: 20070803
  Transmission Date: 20080115
  Serious: Yes (Hospitalization, Other)
  Sender: FDA-Public Use
  Company Number: US-JNJFOC-20070801218

PATIENT
  Age: 51 Year
  Sex: Male

DRUGS (14)
  1. PREZISTA [Suspect]
     Route: 048
  2. PREZISTA [Suspect]
     Indication: HIV INFECTION
     Route: 048
  3. RITONAVIR [Suspect]
     Route: 048
  4. RITONAVIR [Suspect]
     Indication: HIV INFECTION
     Route: 048
  5. MK0518/BLINDED [Suspect]
     Route: 048
  6. MK0518/BLINDED [Suspect]
     Indication: HIV INFECTION
     Route: 048
  7. ENFUVIRTIDE [Suspect]
     Route: 065
  8. ENFUVIRTIDE [Suspect]
     Indication: HIV INFECTION
     Route: 065
  9. GABAPENTIN [Concomitant]
     Route: 065
  10. HYDROCHLOROTHIAZIDE [Concomitant]
     Route: 065
  11. ITRACONAZOLE [Concomitant]
     Route: 065
  12. OXANDROLONE [Concomitant]
  13. BACTRIM DS [Concomitant]
     Route: 065
  14. TOLTERODINE TARTRATE [Concomitant]
     Route: 065

REACTIONS (3)
  - HERPES ZOSTER [None]
  - IMMUNE RECONSTITUTION SYNDROME [None]
  - PYREXIA [None]
